FAERS Safety Report 10733622 (Version 1)
Quarter: 2015Q1

REPORT INFORMATION
  Report Type: Spontaneous
  Country: US (occurrence: US)
  Receive Date: 20150123
  Receipt Date: 20150123
  Transmission Date: 20150721
  Serious: Yes (Hospitalization, Other)
  Sender: FDA-Public Use
  Company Number: US-ABBVIE-15P-163-1337068-00

PATIENT
  Age: 35 Year
  Sex: Male

DRUGS (3)
  1. MESALAMINE. [Concomitant]
     Active Substance: MESALAMINE
     Indication: CROHN^S DISEASE
  2. HUMIRA [Suspect]
     Active Substance: ADALIMUMAB
     Indication: CROHN^S DISEASE
     Route: 065
  3. PREDNISONE. [Concomitant]
     Active Substance: PREDNISONE
     Indication: CROHN^S DISEASE
     Dosage: DAY 60

REACTIONS (12)
  - Pain [Unknown]
  - Dyspnoea [Unknown]
  - Decreased appetite [Unknown]
  - Peritoneal disorder [Unknown]
  - Acute kidney injury [Recovered/Resolved]
  - Ascites [Unknown]
  - Nausea [Unknown]
  - Diarrhoea [Recovering/Resolving]
  - Multi-organ disorder [Unknown]
  - Disseminated tuberculosis [Unknown]
  - Shock [Unknown]
  - Anal fistula [Recovering/Resolving]

NARRATIVE: CASE EVENT DATE: 20140814
